FAERS Safety Report 7027360-X (Version None)
Quarter: 2010Q4

REPORT INFORMATION
  Report Type: 
  Country: None (occurrence: None)
  Receive Date: 20101004
  Receipt Date: 20100928
  Transmission Date: 20110411
  Serious: Yes (Life-Threatening, Hospitalization, Other)
  Sender: FDA-Public Use
  Company Number: PHHY2010US29914

PATIENT
  Sex: Male

DRUGS (9)
  1. EXELON [Suspect]
     Indication: DEMENTIA ALZHEIMER'S TYPE
     Dosage: 9.5 MG, QD
     Route: 062
     Dates: start: 20091016
  2. EXELON [Suspect]
     Dosage: 4.6 MG, UNK
     Route: 062
     Dates: end: 20100501
  3. GABAPENTIN [Suspect]
     Dosage: UNK
  4. DEPAKOTE [Suspect]
     Indication: CONVULSION
     Dosage: UNK
     Dates: end: 20100501
  5. NAMENDA [Suspect]
     Indication: DEMENTIA ALZHEIMER'S TYPE
     Dosage: 10 MG, BID
     Dates: start: 20090101
  6. VITAMIN E [Concomitant]
  7. ASPIRIN [Concomitant]
  8. MULTI-VITAMINS [Concomitant]
  9. RISPERDAL [Concomitant]

REACTIONS (7)
  - AMNESIA [None]
  - BALANCE DISORDER [None]
  - CONVULSION [None]
  - DYSARTHRIA [None]
  - EATING DISORDER [None]
  - GAIT DISTURBANCE [None]
  - GENERAL PHYSICAL HEALTH DETERIORATION [None]
